FAERS Safety Report 18496731 (Version 1)
Quarter: 2020Q4

REPORT INFORMATION
  Report Type: Report from Study
  Country: TR (occurrence: TR)
  Receive Date: 20201112
  Receipt Date: 20201112
  Transmission Date: 20210114
  Serious: Yes (Hospitalization)
  Sender: FDA-Public Use
  Company Number: TR-ELI_LILLY_AND_COMPANY-TR202011002310

PATIENT
  Age: 74 Year
  Sex: Male

DRUGS (5)
  1. HUMULIN NOS [Suspect]
     Active Substance: INSULIN HUMAN
     Dosage: 28 INTERNATIONAL UNIT, EACH EVENING
     Route: 065
     Dates: start: 2005
  2. CANDECARD [Concomitant]
     Indication: BLOOD PRESSURE MEASUREMENT
     Dosage: 1 DOSAGE FORM, DAILY
  3. NOOTROPIL [Concomitant]
     Active Substance: PIRACETAM
     Indication: BLOOD PRESSURE MEASUREMENT
     Dosage: 1 DOSAGE FORM, DAILY
  4. HUMULIN NOS [Suspect]
     Active Substance: INSULIN HUMAN
     Indication: DIABETES MELLITUS
     Dosage: 16 INTERNATIONAL UNIT, EACH MORNING
     Route: 065
     Dates: start: 2005
  5. ECOPIRIN [Concomitant]
     Active Substance: ASPIRIN
     Indication: ANTICOAGULANT THERAPY
     Dosage: 1 DOSAGE FORM, DAILY

REACTIONS (4)
  - COVID-19 [Recovered/Resolved]
  - Balance disorder [Recovered/Resolved]
  - Diabetic coma [Recovered/Resolved]
  - Product dose omission issue [Unknown]

NARRATIVE: CASE EVENT DATE: 202010
